FAERS Safety Report 25144560 (Version 1)
Quarter: 2025Q2

REPORT INFORMATION
  Report Type: Spontaneous
  Country: NP (occurrence: NP)
  Receive Date: 20250401
  Receipt Date: 20250401
  Transmission Date: 20250716
  Serious: Yes (Hospitalization)
  Sender: ACCORD
  Company Number: NP-MLMSERVICE-20250313-PI443568-00218-4

PATIENT
  Age: 61 Year
  Sex: Male

DRUGS (1)
  1. METHOTREXATE [Suspect]
     Active Substance: METHOTREXATE
     Indication: Rheumatoid arthritis

REACTIONS (11)
  - Accidental overdose [Unknown]
  - Pancytopenia [Recovering/Resolving]
  - Scrotal pain [Recovered/Resolved]
  - Blister [Recovered/Resolved]
  - Scrotum erosion [Recovered/Resolved]
  - Mouth ulceration [Recovered/Resolved]
  - Tonsillar hypertrophy [Recovered/Resolved]
  - Papule [Recovered/Resolved]
  - Skin plaque [Recovered/Resolved]
  - Skin lesion [Recovered/Resolved]
  - Skin exfoliation [Recovered/Resolved]
